FAERS Safety Report 8964010 (Version 1)
Quarter: 2012Q4

REPORT INFORMATION
  Report Type: 
  Country: DE (occurrence: DE)
  Receive Date: 20121213
  Receipt Date: 20121213
  Transmission Date: 20130627
  Serious: Yes (Life-Threatening)
  Sender: FDA-Public Use
  Company Number: DE-B.I. PHARMACEUTICALS,INC./RIDGEFIELD-2012-DE-02992DE

PATIENT
  Sex: Female
  Weight: 70 kg

DRUGS (4)
  1. PRADAXA [Suspect]
     Indication: TACHYARRHYTHMIA
     Dosage: 150 mg
     Route: 048
  2. PRADAXA [Suspect]
     Indication: CEREBROVASCULAR ACCIDENT
  3. CARVEDILOL 6.25 [Concomitant]
     Dosage: 13 mg
  4. DOMPERIDON [Concomitant]
     Dosage: 20 mg

REACTIONS (1)
  - Acute coronary syndrome [Unknown]
